FAERS Safety Report 25153786 (Version 1)
Quarter: 2025Q2

REPORT INFORMATION
  Report Type: Spontaneous
  Country: US (occurrence: US)
  Receive Date: 20250403
  Receipt Date: 20250403
  Transmission Date: 20250716
  Serious: No
  Sender: APOTEX
  Company Number: US-APOTEX-2025AP003375

PATIENT
  Sex: Female

DRUGS (1)
  1. FLUTICASONE PROPIONATE [Suspect]
     Active Substance: FLUTICASONE PROPIONATE
     Indication: Sinus disorder
     Dosage: 4 DOSAGE FORM, QD
     Route: 045
     Dates: start: 202503

REACTIONS (3)
  - Oropharyngeal discomfort [Unknown]
  - Dyspnoea [Unknown]
  - Cough [Unknown]
